FAERS Safety Report 7825087-5 (Version None)
Quarter: 2011Q4

REPORT INFORMATION
  Report Type: 
  Country: None (occurrence: None)
  Receive Date: 20111019
  Receipt Date: 20110919
  Transmission Date: 20120403
  Serious: No
  Sender: FDA-Public Use
  Company Number: US-BRISTOL-MYERS SQUIBB COMPANY-15989528

PATIENT
  Age: 66 Year
  Sex: Female
  Weight: 109 kg

DRUGS (1)
  1. AVALIDE [Suspect]
     Indication: HYPERTENSION
     Dosage: 1DF=300/12.5 UNIT NOS. NDC# 2776 31
     Dates: start: 20070101

REACTIONS (3)
  - HEADACHE [None]
  - DRUG INEFFECTIVE [None]
  - DIZZINESS [None]
